FAERS Safety Report 4928519-5 (Version None)
Quarter: 2006Q1

REPORT INFORMATION
  Report Type: 
  Country: None (occurrence: None)
  Receive Date: 20060223
  Receipt Date: 20060216
  Transmission Date: 20060701
  Serious: Yes (Hospitalization, Other)
  Sender: FDA-Public Use
  Company Number: HQWYE884817FEB06

PATIENT
  Age: 72 Year
  Sex: Female

DRUGS (6)
  1. PROPRANOLOL HCL [Suspect]
     Dosage: ORAL
     Route: 048
  2. HERBAL PREPARATION (HERBAL PREPARATION, ) [Suspect]
     Dosage: ORAL
     Route: 048
  3. LORAZEPAM [Suspect]
     Dosage: 0.33 MG 1X PER 1 DAY, ORAL
     Route: 048
  4. DEDROGYL (CALCIFEDIOL) [Concomitant]
  5. EVISTA [Concomitant]
  6. LEVOTHYROXINE SODIUM [Concomitant]

REACTIONS (3)
  - DELUSIONAL DISORDER, UNSPECIFIED TYPE [None]
  - INCOHERENT [None]
  - SOMNOLENCE [None]
